FAERS Safety Report 14846129 (Version 1)
Quarter: 2018Q2

REPORT INFORMATION
  Report Type: Spontaneous
  Country: DE (occurrence: DE)
  Receive Date: 20180504
  Receipt Date: 20180504
  Transmission Date: 20180711
  Serious: Yes (Death, Congenital Anomaly)
  Sender: FDA-Public Use
  Company Number: PHHY2017DE202914

PATIENT

DRUGS (1)
  1. VALPROATE SODIUM. [Suspect]
     Active Substance: VALPROATE SODIUM
     Indication: PATERNAL EXPOSURE TIMING UNSPECIFIED
     Dosage: UNK
     Route: 064

REACTIONS (3)
  - Paternal exposure timing unspecified [Unknown]
  - Umbilical cord thrombosis [Fatal]
  - Congenital anomaly [Fatal]
